FAERS Safety Report 9887835 (Version 1)
Quarter: 2014Q1

REPORT INFORMATION
  Report Type: Report from Study
  Country: GB (occurrence: GB)
  Receive Date: 20140211
  Receipt Date: 20140211
  Transmission Date: 20141002
  Serious: Yes (Other)
  Sender: FDA-Public Use
  Company Number: GB-US-EMD SERONO, INC.-7268653

PATIENT
  Age: 9 Year
  Sex: Male

DRUGS (1)
  1. SAIZEN [Suspect]
     Indication: PRADER-WILLI SYNDROME
     Dosage: 1.7 (UNITS UNSPECIFED)
     Route: 058
     Dates: start: 20121011

REACTIONS (2)
  - Circulatory collapse [Recovered/Resolved]
  - Anxiety [Unknown]
